FAERS Safety Report 10667136 (Version 1)
Quarter: 2014Q4

REPORT INFORMATION
  Report Type: Spontaneous
  Country: US (occurrence: None)
  Receive Date: 20141218
  Receipt Date: 20141218
  Transmission Date: 20150529
  Serious: Yes (Other)
  Sender: FDA-Public Use
  Company Number: US2014036406

PATIENT
  Age: 63 Year
  Sex: Female

DRUGS (1)
  1. SARNA [Suspect]
     Active Substance: CAMPHOR (NATURAL)\MENTHOL\PRAMOXINE HYDROCHLORIDE
     Dosage: TOPICAL ??
     Route: 061

REACTIONS (4)
  - Application site infection [None]
  - Application site erythema [None]
  - Drug ineffective [None]
  - Application site swelling [None]
